FAERS Safety Report 24584550 (Version 1)
Quarter: 2024Q4

REPORT INFORMATION
  Report Type: Spontaneous
  Country: US (occurrence: None)
  Receive Date: 20241106
  Receipt Date: 20241106
  Transmission Date: 20250115
  Serious: No
  Sender: Public
  Company Number: None

PATIENT
  Sex: Female
  Weight: 78.1 kg

DRUGS (1)
  1. FEMARA [Suspect]
     Active Substance: LETROZOLE

REACTIONS (3)
  - Enteritis [None]
  - Nausea [None]
  - White blood cell count increased [None]
